FAERS Safety Report 4674329-6 (Version None)
Quarter: 2005Q2

REPORT INFORMATION
  Report Type: 
  Country: None (occurrence: None)
  Receive Date: 20050524
  Receipt Date: 20050511
  Transmission Date: 20051028
  Serious: Yes (Death, Other)
  Sender: FDA-Public Use
  Company Number: US_0505117350

PATIENT
  Age: 58 Year
  Sex: Female

DRUGS (7)
  1. ZYPREXA [Suspect]
     Indication: NAUSEA
     Dosage: 5 MG/ 2 DAY
  2. FAMOTIDINE [Concomitant]
  3. OCTREOTIDE ACETATE [Concomitant]
  4. MIRTAZAPINE [Concomitant]
  5. MORPHINE [Concomitant]
  6. EZOL [Concomitant]
  7. RADIATION THERAPY [Concomitant]

REACTIONS (4)
  - DELIRIUM [None]
  - HALLUCINATION, VISUAL [None]
  - MYOCLONUS [None]
  - NEUROTOXICITY [None]
